FAERS Safety Report 4397391-7 (Version None)
Quarter: 2004Q3

REPORT INFORMATION
  Report Type: 
  Country: None (occurrence: None)
  Receive Date: 20040708
  Receipt Date: 20040629
  Transmission Date: 20050211
  Serious: Yes (Other)
  Sender: FDA-Public Use
  Company Number: 2004219761SE

PATIENT
  Age: 53 Year
  Sex: Male
  Weight: 75.5 kg

DRUGS (1)
  1. GENOTROPIN [Suspect]
     Indication: HYPOPITUITARISM
     Dosage: 0.2 MG, QD
     Dates: start: 19980604, end: 20040122

REACTIONS (2)
  - MENINGIOMA [None]
  - NEOPLASM RECURRENCE [None]
